FAERS Safety Report 25576467 (Version 1)
Quarter: 2025Q3

REPORT INFORMATION
  Report Type: Spontaneous
  Country: US (occurrence: US)
  Receive Date: 20250718
  Receipt Date: 20250718
  Transmission Date: 20251021
  Serious: Yes (Death, Hospitalization, Other)
  Sender: APOTEX
  Company Number: US-APOTEX-2025AP010130

PATIENT
  Age: 51 Year
  Sex: Male

DRUGS (3)
  1. ANASTROZOLE [Suspect]
     Active Substance: ANASTROZOLE
     Indication: Product used for unknown indication
     Route: 065
  2. TESTOSTERONE [Suspect]
     Active Substance: TESTOSTERONE
     Indication: Product used for unknown indication
     Route: 065
  3. BETAINE [Suspect]
     Active Substance: BETAINE
     Indication: Product used for unknown indication
     Route: 065

REACTIONS (4)
  - Cardiac failure congestive [Fatal]
  - Acute respiratory distress syndrome [Fatal]
  - Disseminated intravascular coagulation [Fatal]
  - Cardiac arrest [Fatal]
